FAERS Safety Report 8948177 (Version 1)
Quarter: 2012Q4

REPORT INFORMATION
  Report Type: 
  Country: ES (occurrence: ES)
  Receive Date: 20121204
  Receipt Date: 20121204
  Transmission Date: 20130627
  Serious: Yes (Other)
  Sender: FDA-Public Use
  Company Number: ES-ELI_LILLY_AND_COMPANY-ES201209006459

PATIENT
  Age: 28 Year
  Sex: Female

DRUGS (4)
  1. CYMBALTA [Suspect]
     Indication: DEPRESSION
     Dosage: 30 mg, qd
     Dates: start: 20120704
  2. CYMBALTA [Suspect]
     Dosage: 60 mg, qd
  3. OLANZAPINE [Suspect]
     Indication: PSYCHOTIC DISORDER
     Dosage: 5 mg, UNK
     Dates: start: 20120919
  4. LORAZEPAM [Concomitant]
     Dosage: UNK
     Dates: start: 20120704

REACTIONS (3)
  - Premature labour [Unknown]
  - Exposure during pregnancy [Not Recovered/Not Resolved]
  - Psychotic disorder [Unknown]
